FAERS Safety Report 24692786 (Version 1)
Quarter: 2024Q4

REPORT INFORMATION
  Report Type: Spontaneous
  Country: US (occurrence: None)
  Receive Date: 20241203
  Receipt Date: 20241203
  Transmission Date: 20250115
  Serious: Yes (Life-Threatening, Hospitalization)
  Sender: Public
  Company Number: None

PATIENT
  Age: 49 Year
  Sex: Male
  Weight: 67 kg

DRUGS (1)
  1. WARFARIN SODIUM [Suspect]
     Active Substance: WARFARIN SODIUM
     Indication: Mitral valve replacement
     Dosage: ORAL
     Route: 048

REACTIONS (5)
  - Fall [None]
  - Bradycardia [None]
  - Hypertension [None]
  - Subdural haematoma [None]
  - Endotracheal intubation complication [None]

NARRATIVE: CASE EVENT DATE: 20240721
